FAERS Safety Report 8271661-4 (Version None)
Quarter: 2012Q2

REPORT INFORMATION
  Report Type: 
  Country: None (occurrence: None)
  Receive Date: 20120410
  Receipt Date: 20120329
  Transmission Date: 20120825
  Serious: Yes (Hospitalization, Other)
  Sender: FDA-Public Use
  Company Number: US-BRISTOL-MYERS SQUIBB COMPANY-16492423

PATIENT
  Age: 74 Year
  Sex: Male
  Weight: 83 kg

DRUGS (3)
  1. CEFEPIME [Suspect]
  2. DECADRON [Suspect]
     Indication: ACUTE LYMPHOCYTIC LEUKAEMIA
     Dosage: LAST DOSE ON 12MAR2012 20MG IV DAYS 1-7ENDED 10MG/M2 ORAL DAYS 1-7 NO OF COURSE:1(TOT)
     Route: 048
     Dates: start: 20120306
  3. SPRYCEL [Suspect]
     Indication: ACUTE LYMPHOCYTIC LEUKAEMIA
     Dosage: LAST DOSE ON 15MAR2012 INTERRUPTED ON 16MAR2012 RESTARTED ON 18MAR2012 NO OF COURSE:1(TOT)
     Route: 048
     Dates: start: 20120306

REACTIONS (3)
  - DEPRESSED LEVEL OF CONSCIOUSNESS [None]
  - PNEUMONIA [None]
  - ESCHERICHIA BACTERAEMIA [None]
